FAERS Safety Report 6996877-6 (Version None)
Quarter: 2010Q3

REPORT INFORMATION
  Report Type: 
  Country: None (occurrence: None)
  Receive Date: 20100918
  Receipt Date: 20090902
  Transmission Date: 20110219
  Serious: No
  Sender: FDA-Public Use
  Company Number: US-WYE-H10348609

PATIENT
  Age: 54 Year
  Sex: Female
  Weight: 56.75 kg

DRUGS (3)
  1. PREMPRO [Suspect]
     Indication: HOT FLUSH
     Dosage: 0.625MG/5MG DAILY
     Route: 048
     Dates: start: 20080701, end: 20090718
  2. BUTALBITAL/CAFFEINE/PARACETAMOL [Concomitant]
  3. EXCEDRIN (MIGRAINE) [Concomitant]

REACTIONS (5)
  - BREAST ENLARGEMENT [None]
  - BREAST PAIN [None]
  - LIMB DISCOMFORT [None]
  - LYMPHADENOPATHY [None]
  - PRODUCT QUALITY ISSUE [None]
